FAERS Safety Report 13819425 (Version 1)
Quarter: 2017Q3

REPORT INFORMATION
  Report Type: Spontaneous
  Country: US (occurrence: US)
  Receive Date: 20170731
  Receipt Date: 20170731
  Transmission Date: 20171127
  Serious: Yes (Other)
  Sender: FDA-Public Use
  Company Number: None

PATIENT
  Age: 48 Year
  Sex: Female
  Weight: 75.6 kg

DRUGS (4)
  1. SEROQUEL [Concomitant]
     Active Substance: QUETIAPINE FUMARATE
  2. AMITIZA [Suspect]
     Active Substance: LUBIPROSTONE
     Indication: IMPAIRED GASTRIC EMPTYING
     Dosage: ?          QUANTITY:30 CAPSULE(S);?
     Route: 048
     Dates: start: 20170615, end: 20170730
  3. AMBIEN [Concomitant]
     Active Substance: ZOLPIDEM TARTRATE
  4. WELLBUTRIN [Concomitant]
     Active Substance: BUPROPION HYDROCHLORIDE

REACTIONS (7)
  - Product odour abnormal [None]
  - Skin odour abnormal [None]
  - Product physical issue [None]
  - Product quality issue [None]
  - Abnormal faeces [None]
  - Muscle spasms [None]
  - Diarrhoea [None]

NARRATIVE: CASE EVENT DATE: 20170701
